FAERS Safety Report 5648014-8 (Version None)
Quarter: 2008Q1

REPORT INFORMATION
  Report Type: 
  Country: None (occurrence: None)
  Receive Date: 20080229
  Receipt Date: 20080229
  Transmission Date: 20080703
  Serious: No
  Sender: FDA-Public Use
  Company Number: None

PATIENT
  Age: 54 Year
  Sex: Male

DRUGS (1)
  1. DOCETAXEL [Suspect]
     Indication: PROSTATE CANCER
     Dosage: 120MG ONCE IV
     Route: 042
     Dates: start: 20080228, end: 20080228

REACTIONS (5)
  - ABDOMINAL PAIN [None]
  - BACK PAIN [None]
  - BRONCHOSPASM [None]
  - HYPERHIDROSIS [None]
  - INFUSION RELATED REACTION [None]
